FAERS Safety Report 8584381-3 (Version None)
Quarter: 2012Q3

REPORT INFORMATION
  Report Type: 
  Country: None (occurrence: None)
  Receive Date: 20120810
  Receipt Date: 20120803
  Transmission Date: 20120928
  Serious: No
  Sender: FDA-Public Use
  Company Number: US-BIOGENIDEC-2012BI028308

PATIENT
  Age: 47 Year
  Sex: Female

DRUGS (1)
  1. AVONEX [Suspect]
     Indication: MULTIPLE SCLEROSIS
     Route: 030
     Dates: start: 20120711

REACTIONS (9)
  - INFLUENZA LIKE ILLNESS [None]
  - MUSCLE SPASMS [None]
  - HYPOAESTHESIA [None]
  - PAIN [None]
  - BODY TEMPERATURE DECREASED [None]
  - FACIAL PAIN [None]
  - MIGRAINE [None]
  - PAIN IN EXTREMITY [None]
  - PAIN IN JAW [None]
